FAERS Safety Report 7086714-6 (Version None)
Quarter: 2010Q4

REPORT INFORMATION
  Report Type: 
  Country: None (occurrence: None)
  Receive Date: 20101105
  Receipt Date: 20101025
  Transmission Date: 20110411
  Serious: Yes (Other)
  Sender: FDA-Public Use
  Company Number: US-ROCHE-737570

PATIENT

DRUGS (1)
  1. ISOTRETINOIN [Suspect]
     Indication: NEUROBLASTOMA
     Route: 065

REACTIONS (15)
  - ALANINE AMINOTRANSFERASE ABNORMAL [None]
  - CONVULSION [None]
  - DEVICE RELATED INFECTION [None]
  - DIARRHOEA [None]
  - EYE DISORDER [None]
  - HYPERCALCAEMIA [None]
  - HYPERSENSITIVITY [None]
  - HYPOKALAEMIA [None]
  - HYPONATRAEMIA [None]
  - HYPOXIA [None]
  - INFECTION [None]
  - NAUSEA [None]
  - NEURALGIA [None]
  - PYREXIA [None]
  - VOMITING [None]
